FAERS Safety Report 18244573 (Version 2)
Quarter: 2020Q4

REPORT INFORMATION
  Report Type: Spontaneous
  Country: US (occurrence: US)
  Receive Date: 20200908
  Receipt Date: 20201029
  Transmission Date: 20210113
  Serious: No
  Sender: FDA-Public Use
  Company Number: US-INCYTE CORPORATION-2020IN008462

PATIENT

DRUGS (2)
  1. JAKAFI [Suspect]
     Active Substance: RUXOLITINIB
     Dosage: CUTTING 15 MG TAB IN HALF AND TAKING ONE HALF IN THE MORNING AND ONE HALF AT NIGHT
     Route: 065
  2. JAKAFI [Suspect]
     Active Substance: RUXOLITINIB
     Indication: MYELOFIBROSIS
     Dosage: 15 MILLIGRAM, BID
     Route: 048

REACTIONS (8)
  - Asthenia [Unknown]
  - Product dose omission issue [Unknown]
  - Vertigo [Unknown]
  - Wrong technique in product usage process [Unknown]
  - Balance disorder [Unknown]
  - Ear disorder [Unknown]
  - Underdose [Unknown]
  - Dyspnoea [Unknown]
